FAERS Safety Report 24553764 (Version 1)
Quarter: 2024Q4

REPORT INFORMATION
  Report Type: Report from Study
  Country: US (occurrence: US)
  Receive Date: 20241028
  Receipt Date: 20241028
  Transmission Date: 20250115
  Serious: No
  Sender: ROCHE
  Company Number: US-ROCHE-10000009286

PATIENT
  Sex: Female
  Weight: 29.7 kg

DRUGS (1)
  1. NUTROPIN AQ [Suspect]
     Active Substance: SOMATROPIN
     Indication: Short stature
     Route: 058
     Dates: start: 20170607

REACTIONS (8)
  - Pyrexia [Unknown]
  - Disturbance in attention [Unknown]
  - Urticaria [Unknown]
  - Headache [Unknown]
  - Oropharyngeal pain [Unknown]
  - Cough [Unknown]
  - Upper respiratory tract infection [Unknown]
  - Off label use [Unknown]
